FAERS Safety Report 9500886 (Version 2)
Quarter: 2013Q3

REPORT INFORMATION
  Report Type: Spontaneous
  Country: BR (occurrence: BR)
  Receive Date: 20130905
  Receipt Date: 20130911
  Transmission Date: 20140515
  Serious: Yes (Other)
  Sender: FDA-Public Use
  Company Number: BR-JNJFOC-20130901092

PATIENT
  Age: 70 Year
  Sex: Female

DRUGS (3)
  1. XARELTO [Suspect]
     Indication: CEREBROVASCULAR ACCIDENT PROPHYLAXIS
     Route: 048
     Dates: start: 201303
  2. DUO DECADRON [Suspect]
     Indication: PHARYNGITIS
     Route: 065
  3. DUO DECADRON [Suspect]
     Indication: HYPERSENSITIVITY
     Route: 065

REACTIONS (4)
  - Abscess [Recovered/Resolved]
  - Haemorrhoidal haemorrhage [Unknown]
  - Hypersensitivity [Unknown]
  - Pharyngitis [Unknown]
